FAERS Safety Report 18588736 (Version 2)
Quarter: 2020Q4

REPORT INFORMATION
  Report Type: Report from Study
  Country: None (occurrence: CA)
  Receive Date: 20201207
  Receipt Date: 20201209
  Transmission Date: 20210114
  Serious: Yes (Other)
  Sender: FDA-Public Use
  Company Number: CA-ABBVIE-20K-028-3680741-00

PATIENT
  Age: 66 Year
  Sex: Female

DRUGS (1)
  1. HUMIRA [Suspect]
     Active Substance: ADALIMUMAB
     Indication: COLITIS ULCERATIVE
     Route: 058
     Dates: start: 20190913

REACTIONS (3)
  - Suture removal [Unknown]
  - Foot deformity [Not Recovered/Not Resolved]
  - Postoperative wound infection [Unknown]

NARRATIVE: CASE EVENT DATE: 2020
